FAERS Safety Report 13888144 (Version 1)
Quarter: 2017Q3

REPORT INFORMATION
  Report Type: Spontaneous
  Country: FR (occurrence: FR)
  Receive Date: 20170821
  Receipt Date: 20170821
  Transmission Date: 20171127
  Serious: Yes (Other)
  Sender: FDA-Public Use
  Company Number: FR-TEVA-797361ROM

PATIENT
  Age: 56 Year
  Sex: Male

DRUGS (4)
  1. KIDROLASE [Suspect]
     Active Substance: ASPARAGINASE
     Indication: ACUTE LEUKAEMIA
     Dosage: 12240 IU (INTERNATIONAL UNIT) DAILY;
     Route: 042
     Dates: start: 20170707, end: 20170721
  2. CERUBIDINE [Suspect]
     Active Substance: DAUNORUBICIN HYDROCHLORIDE
     Indication: ACUTE LEUKAEMIA
     Dosage: 60 MILLIGRAM DAILY;
     Route: 042
     Dates: start: 20170630, end: 20170715
  3. ENDOXAN [Suspect]
     Active Substance: CYCLOPHOSPHAMIDE
     Indication: ACUTE LEUKAEMIA
     Route: 042
     Dates: start: 20170630, end: 20170714
  4. VINCRISTINE TEVA [Suspect]
     Active Substance: VINCRISTINE
     Indication: ACUTE LEUKAEMIA
     Dosage: 2 MILLIGRAM DAILY;
     Route: 042
     Dates: start: 20170630, end: 20170721

REACTIONS (1)
  - Hepatic steatosis [Recovering/Resolving]

NARRATIVE: CASE EVENT DATE: 20170712
